FAERS Safety Report 12776984 (Version 3)
Quarter: 2017Q4

REPORT INFORMATION
  Report Type: Spontaneous
  Country: US (occurrence: US)
  Receive Date: 20160923
  Receipt Date: 20171011
  Transmission Date: 20180320
  Serious: Yes (Hospitalization)
  Sender: FDA-Public Use
  Company Number: US-IMPAX LABORATORIES, INC-2016-IPXL-01029

PATIENT
  Age: 76 Year
  Sex: Male
  Weight: 86 kg

DRUGS (7)
  1. RYTARY [Suspect]
     Active Substance: CARBIDOPA\LEVODOPA
     Indication: PARKINSON^S DISEASE
     Dosage: 61.25/ 245 MG, THREE CAPSULES THREE TIMES A DAY
     Route: 048
     Dates: start: 201505
  2. TYLENOL [Concomitant]
     Active Substance: ACETAMINOPHEN
     Indication: PRODUCT USED FOR UNKNOWN INDICATION
     Dosage: UNK
     Route: 065
  3. LISINOPRIL. [Concomitant]
     Active Substance: LISINOPRIL
     Indication: HYPERTENSION
     Dosage: 5 MG, DAILY
     Route: 065
  4. BUPROPION. [Concomitant]
     Active Substance: BUPROPION
     Indication: ANXIETY
     Dosage: 75 MG, BID
     Route: 065
  5. METHYLPREDNISOLONE. [Concomitant]
     Active Substance: METHYLPREDNISOLONE
     Indication: PRODUCT USED FOR UNKNOWN INDICATION
     Dosage: UNK
     Route: 065
  6. VITAMIN, MULTIPLE [Concomitant]
     Indication: VITAMIN SUPPLEMENTATION
     Dosage: UNK
     Route: 065
  7. COQ10 [Concomitant]
     Active Substance: UBIDECARENONE
     Indication: PARKINSON^S DISEASE
     Dosage: UNK
     Route: 065

REACTIONS (2)
  - Pre-existing condition improved [Unknown]
  - Road traffic accident [Recovered/Resolved]

NARRATIVE: CASE EVENT DATE: 201608
